FAERS Safety Report 9190133 (Version 4)
Quarter: 2013Q2

REPORT INFORMATION
  Report Type: Spontaneous
  Country: JP (occurrence: JP)
  Receive Date: 20130326
  Receipt Date: 20130428
  Transmission Date: 20140414
  Serious: Yes (Life-Threatening, Other)
  Sender: FDA-Public Use
  Company Number: JP-BRISTOL-MYERS SQUIBB COMPANY-17469453

PATIENT
  Age: 15 Year
  Sex: Female
  Weight: 36 kg

DRUGS (4)
  1. ABILIFY TABS [Suspect]
     Indication: DEPRESSIVE SYMPTOM
     Dosage: FORMULATION-ABILIFY TABS 3MG
     Route: 048
     Dates: start: 20120731, end: 20130304
  2. ACETAMINOPHEN [Suspect]
     Indication: GASTROENTERITIS
     Route: 054
     Dates: start: 20130301, end: 20130303
  3. FLOMOX [Suspect]
     Indication: GASTROENTERITIS
     Dosage: TABS
     Route: 048
     Dates: start: 20130301, end: 20130303
  4. NAUZELIN [Suspect]

REACTIONS (6)
  - Rhabdomyolysis [Recovered/Resolved]
  - Type 1 diabetes mellitus [Not Recovered/Not Resolved]
  - Diabetic ketoacidotic hyperglycaemic coma [Recovered/Resolved]
  - Renal failure acute [Recovered/Resolved]
  - Off label use [Unknown]
  - Gastroenteritis [Unknown]
